FAERS Safety Report 13609048 (Version 1)
Quarter: 2017Q2

REPORT INFORMATION
  Report Type: Spontaneous
  Country: US (occurrence: US)
  Receive Date: 20170602
  Receipt Date: 20170602
  Transmission Date: 20170830
  Serious: Yes (Other)
  Sender: FDA-Public Use
  Company Number: US-SAOL THERAPEUTICS-2017SAO00952

PATIENT
  Sex: Male

DRUGS (4)
  1. BUPIVACAINE. [Suspect]
     Active Substance: BUPIVACAINE
     Route: 037
  2. MORPHINE [Suspect]
     Active Substance: MORPHINE
     Route: 037
  3. BACLOFEN. [Suspect]
     Active Substance: BACLOFEN
     Route: 037
  4. CLONIDINE. [Suspect]
     Active Substance: CLONIDINE
     Route: 037

REACTIONS (4)
  - Off label use [Unknown]
  - Pain [Unknown]
  - Amnesia [Unknown]
  - Cerebral atrophy [Unknown]

NARRATIVE: CASE EVENT DATE: 20161029
